FAERS Safety Report 22986770 (Version 2)
Quarter: 2023Q4

REPORT INFORMATION
  Report Type: Spontaneous
  Country: US (occurrence: US)
  Receive Date: 20230926
  Receipt Date: 20231010
  Transmission Date: 20240110
  Serious: No
  Sender: FDA-Public Use
  Company Number: US-PFIZER INC-202300307932

PATIENT
  Age: 84 Year
  Sex: Male
  Weight: 97.52 kg

DRUGS (6)
  1. VYNDAMAX [Suspect]
     Active Substance: TAFAMIDIS
     Indication: Cardiac disorder
     Dosage: 61 MG, 1X/DAY
     Dates: start: 20230919, end: 20230921
  2. VYNDAMAX [Suspect]
     Active Substance: TAFAMIDIS
     Indication: Familial amyloidosis
  3. FUROSEMIDE [Concomitant]
     Active Substance: FUROSEMIDE
     Dosage: 40 MG (DIRECTED TO STOP TAKING IT)
  4. LISINOPRIL [Concomitant]
     Active Substance: LISINOPRIL
     Dosage: UNK, 1X/DAY
  5. SPIRONOLACTONE [Concomitant]
     Active Substance: SPIRONOLACTONE
     Dosage: UNK, 1X/DAY
  6. TORSEMIDE [Concomitant]
     Active Substance: TORSEMIDE
     Dosage: UNK, 2X/DAY

REACTIONS (5)
  - Presyncope [Unknown]
  - Dizziness [Recovered/Resolved]
  - Malaise [Recovered/Resolved]
  - Poor quality sleep [Unknown]
  - Disorientation [Unknown]

NARRATIVE: CASE EVENT DATE: 20230920
